FAERS Safety Report 4349308-9 (Version None)
Quarter: 2004Q2

REPORT INFORMATION
  Report Type: 
  Country: None (occurrence: None)
  Receive Date: 20040428
  Receipt Date: 20040405
  Transmission Date: 20050107
  Serious: Yes (Hospitalization)
  Sender: FDA-Public Use
  Company Number: US-BRISTOL-MYERS SQUIBB COMPANY-12550562

PATIENT
  Age: 69 Year
  Sex: Female
  Weight: 94 kg

DRUGS (9)
  1. CARBOPLATIN [Suspect]
     Indication: NON-SMALL CELL LUNG CANCER
     Dosage: AUC 5.5 DAY 1
     Route: 042
     Dates: start: 20040225, end: 20040225
  2. GEMZAR [Suspect]
     Indication: NON-SMALL CELL LUNG CANCER
     Dosage: 1ST DOSE -25FEB04 DAY 1 + 8
     Route: 042
     Dates: start: 20040303, end: 20040303
  3. CELEBREX [Suspect]
     Indication: NON-SMALL CELL LUNG CANCER
     Route: 048
     Dates: start: 20040225, end: 20040225
  4. LEVOTHYROXINE [Concomitant]
  5. MULTI-VITAMIN [Concomitant]
  6. TRANSDERMAL NICOTINE [Concomitant]
  7. ALBUTEROL [Concomitant]
  8. ATROVENT [Concomitant]
  9. XANAX [Concomitant]

REACTIONS (3)
  - CHEST PAIN [None]
  - DYSPNOEA EXERTIONAL [None]
  - PLATELET COUNT DECREASED [None]
